FAERS Safety Report 10007986 (Version 2)
Quarter: 2014Q2

REPORT INFORMATION
  Report Type: Spontaneous
  Country: GB (occurrence: GB)
  Receive Date: 20140313
  Receipt Date: 20140424
  Transmission Date: 20141212
  Serious: Yes (Death)
  Sender: FDA-Public Use
  Company Number: PHFR2014GB002130

PATIENT
  Age: 53 Year
  Sex: Male

DRUGS (4)
  1. CLOZARIL [Suspect]
     Indication: SCHIZOPHRENIA
     Dosage: 425 MG, DAILY
     Route: 048
     Dates: start: 20010212
  2. PAROXETINE [Concomitant]
     Indication: DEPRESSION
     Dosage: 40 MG, DAILLY
     Route: 048
  3. PIRENZEPINE [Concomitant]
     Indication: ADVERSE DRUG REACTION
     Dosage: 25 MG, BID
     Route: 048
  4. LANSOPRAZOLE [Concomitant]
     Dosage: 30 MG, QD

REACTIONS (4)
  - Cardiac arrest [Fatal]
  - Myocardial infarction [Fatal]
  - White blood cell count increased [Unknown]
  - Neutrophil count increased [Unknown]
